FAERS Safety Report 9642019 (Version 2)
Quarter: 2014Q1

REPORT INFORMATION
  Report Type: Spontaneous
  Country: GB (occurrence: GB)
  Receive Date: 20131023
  Receipt Date: 20140310
  Transmission Date: 20141002
  Serious: Yes (Hospitalization)
  Sender: FDA-Public Use
  Company Number: GB-BAXTER-2013BAX040606

PATIENT
  Age: 8 Year
  Sex: Female
  Weight: 38.8 kg

DRUGS (9)
  1. METRONIDAZOL 500MG [Suspect]
     Indication: DIARRHOEA HAEMORRHAGIC
     Route: 042
     Dates: start: 20130926, end: 20130930
  2. METRONIDAZOL 500MG [Suspect]
     Indication: DIARRHOEA
  3. BUSCOPAN [Concomitant]
     Indication: ABDOMINAL PAIN
     Route: 048
     Dates: start: 20130926, end: 20130926
  4. CEFOTAXIME [Concomitant]
     Indication: DIARRHOEA
     Route: 042
     Dates: start: 20130926, end: 20130926
  5. CODEINE PHOSPHATE [Concomitant]
     Indication: PAIN
     Route: 048
     Dates: start: 20130926, end: 20130926
  6. ONDANSETRON [Concomitant]
     Indication: NAUSEA
     Route: 048
     Dates: start: 20130929, end: 20130930
  7. ONDANSETRON [Concomitant]
     Indication: VOMITING
  8. PARACETAMOL [Concomitant]
     Indication: PAIN
     Route: 048
     Dates: start: 20130926, end: 20131001
  9. PARACETAMOL [Concomitant]
     Indication: PYREXIA

REACTIONS (1)
  - Haemolytic uraemic syndrome [Recovered/Resolved]
